FAERS Safety Report 15854950 (Version 1)
Quarter: 2019Q1

REPORT INFORMATION
  Report Type: Report from Study
  Country: IT (occurrence: SA)
  Receive Date: 20190122
  Receipt Date: 20190122
  Transmission Date: 20190417
  Serious: Yes (Other)
  Sender: FDA-Public Use
  Company Number: IT-MYLANLABS-2019M1005452

PATIENT
  Age: 72 Year
  Sex: Male

DRUGS (2)
  1. PIOGLITAZONE. [Suspect]
     Active Substance: PIOGLITAZONE
     Dosage: 15 MILLIGRAM, QD
     Route: 065
  2. PIOGLITAZONE. [Suspect]
     Active Substance: PIOGLITAZONE
     Indication: CARDIAC FAILURE CONGESTIVE
     Dosage: 15 MILLIGRAM
     Route: 065

REACTIONS (1)
  - Product prescribing error [Unknown]
